FAERS Safety Report 8210383-2 (Version None)
Quarter: 2012Q1

REPORT INFORMATION
  Report Type: 
  Country: None (occurrence: None)
  Receive Date: 20120314
  Receipt Date: 20120116
  Transmission Date: 20120608
  Serious: No
  Sender: FDA-Public Use
  Company Number: US-ASTRAZENECA-2012SE03285

PATIENT
  Age: 63 Year
  Sex: Female

DRUGS (4)
  1. ALBUTEROL SULPHATE HFA [Concomitant]
  2. VENTOLIN HFA [Concomitant]
  3. MEDROL [Concomitant]
  4. TOPROL-XL [Suspect]
     Route: 048

REACTIONS (2)
  - ASTHMA [None]
  - ACUTE SINUSITIS [None]
